FAERS Safety Report 6799127-9 (Version None)
Quarter: 2010Q2

REPORT INFORMATION
  Report Type: 
  Country: None (occurrence: None)
  Receive Date: 20100615
  Receipt Date: 20100608
  Transmission Date: 20101027
  Serious: Yes (Other)
  Sender: FDA-Public Use
  Company Number: WAES 1006USA01090

PATIENT
  Age: 83 Year
  Sex: Female

DRUGS (10)
  1. FOSAMAX [Suspect]
     Indication: PROPHYLAXIS
     Dosage: 35 MG/ PO
     Route: 048
     Dates: start: 20090401
  2. PIRFENIDONE UNK [Suspect]
     Indication: IDIOPATHIC PULMONARY FIBROSIS
     Dosage: 200 MG/TID/ PO; 400 MG/TID/ PO
     Route: 048
     Dates: start: 20090303
  3. PIRFENIDONE UNK [Suspect]
     Indication: IDIOPATHIC PULMONARY FIBROSIS
     Dosage: 200 MG/TID/ PO; 400 MG/TID/ PO
     Route: 048
     Dates: start: 20090311
  4. COTRIM [Concomitant]
  5. GASTER D [Concomitant]
  6. DIGOXIN [Concomitant]
  7. PREDONINE [Concomitant]
  8. PROMAC D [Concomitant]
  9. PURSENNID [Concomitant]
  10. VASOLAN [Concomitant]

REACTIONS (4)
  - ABDOMINAL DISCOMFORT [None]
  - CONSTIPATION [None]
  - DECREASED APPETITE [None]
  - DYSGEUSIA [None]
